FAERS Safety Report 19910488 (Version 1)
Quarter: 2021Q4

REPORT INFORMATION
  Report Type: Spontaneous
  Country: SE (occurrence: SE)
  Receive Date: 20211004
  Receipt Date: 20211004
  Transmission Date: 20220303
  Serious: Yes (Hospitalization, Other)
  Sender: FDA-Public Use
  Company Number: SE-BRISTOL-MYERS SQUIBB COMPANY-BMS-2021-099052

PATIENT
  Age: 71 Year
  Sex: Female

DRUGS (7)
  1. ABATACEPT [Suspect]
     Active Substance: ABATACEPT
     Indication: Palindromic rheumatism
     Dosage: UNK (5.5 YEARS)
     Route: 065
  2. ADALIMUMAB [Suspect]
     Active Substance: ADALIMUMAB
     Indication: Palindromic rheumatism
     Dosage: UNK (5.5 YEARS)
     Route: 065
     Dates: start: 201302
  3. INFLIXIMAB [Suspect]
     Active Substance: INFLIXIMAB
     Indication: Palindromic rheumatism
     Dosage: UNK (5.5 YEARS)
     Route: 065
  4. METHOTREXATE SODIUM [Suspect]
     Active Substance: METHOTREXATE SODIUM
     Indication: Palindromic rheumatism
     Dosage: UNK
     Route: 065
  5. PREDNISOLONE [Suspect]
     Active Substance: PREDNISOLONE
     Indication: Palindromic rheumatism
     Dosage: UNK
     Route: 065
  6. ENBREL [Suspect]
     Active Substance: ETANERCEPT
     Indication: Palindromic rheumatism
     Dosage: UNK
     Route: 065
  7. UNSPECIFIED INGREDIENT [Concomitant]
     Active Substance: UNSPECIFIED INGREDIENT
     Indication: Product used for unknown indication
     Route: 065

REACTIONS (1)
  - Whipple^s disease [Recovered/Resolved]

NARRATIVE: CASE EVENT DATE: 20150601
